FAERS Safety Report 7141981-5 (Version None)
Quarter: 2010Q4

REPORT INFORMATION
  Report Type: 
  Country: None (occurrence: None)
  Receive Date: 20101207
  Receipt Date: 20101124
  Transmission Date: 20110411
  Serious: Yes (Hospitalization, Congenital Anomaly)
  Sender: FDA-Public Use
  Company Number: A0847410A

PATIENT
  Sex: Female
  Weight: 1.7 kg

DRUGS (6)
  1. PAXIL [Suspect]
  2. ZOMIG [Concomitant]
  3. BIRTH CONTROL PILL [Concomitant]
  4. ALBUTEROL [Concomitant]
  5. ACEBUTOLOL [Concomitant]
  6. PRENATAL VITAMINS [Concomitant]

REACTIONS (12)
  - ARTHROPATHY [None]
  - ATRIAL SEPTAL DEFECT [None]
  - CONGENITAL HYDROCEPHALUS [None]
  - CONVULSION [None]
  - CRANIOSYNOSTOSIS [None]
  - DRUG EXPOSURE DURING PREGNANCY [None]
  - GASTROINTESTINAL DISORDER CONGENITAL [None]
  - HYPOXIC-ISCHAEMIC ENCEPHALOPATHY [None]
  - LUNG DISORDER [None]
  - MICROCEPHALY [None]
  - PULMONARY VALVE STENOSIS [None]
  - TALIPES [None]
